FAERS Safety Report 15186472 (Version 2)
Quarter: 2019Q1

REPORT INFORMATION
  Report Type: Report from Study
  Country: US (occurrence: US)
  Receive Date: 20180723
  Receipt Date: 20190130
  Transmission Date: 20190417
  Serious: No
  Sender: FDA-Public Use
  Company Number: US-EXELIXIS-CABO-18013047

PATIENT
  Sex: Male

DRUGS (1)
  1. CABOMETYX [Suspect]
     Active Substance: CABOZANTINIB S-MALATE
     Indication: RENAL CELL CARCINOMA
     Dosage: UNK, (ALTERNATING 40MG WITH 60MG EVERY OTHER DAY)
     Dates: start: 201709

REACTIONS (3)
  - Diarrhoea [Unknown]
  - Tooth disorder [Unknown]
  - Blood pressure fluctuation [Unknown]
